FAERS Safety Report 8959780 (Version 1)
Quarter: 2012Q4

REPORT INFORMATION
  Report Type: 
  Country: FR (occurrence: FR)
  Receive Date: 20121212
  Receipt Date: 20121212
  Transmission Date: 20130627
  Serious: Yes (Hospitalization, Other)
  Sender: FDA-Public Use
  Company Number: FR-ROCHE-1153947

PATIENT
  Age: 62 Year
  Sex: Male
  Weight: 73 kg

DRUGS (5)
  1. AVASTIN [Suspect]
     Indication: COLON CANCER METASTATIC
     Route: 042
     Dates: start: 20121105
  2. IRINOTECAN [Concomitant]
     Indication: COLON CANCER METASTATIC
     Route: 042
     Dates: start: 20121105, end: 20121105
  3. 5-FU [Concomitant]
     Indication: COLON CANCER METASTATIC
     Route: 042
     Dates: start: 20121105
  4. 5-FU [Concomitant]
     Route: 042
     Dates: start: 20121105
  5. BETA BLOCKING AGENTS [Concomitant]
     Indication: HYPERTENSION

REACTIONS (3)
  - Bradycardia [Recovered/Resolved]
  - Hypothermia [Recovered/Resolved]
  - Chills [Recovered/Resolved]
